FAERS Safety Report 16303967 (Version 2)
Quarter: 2019Q2

REPORT INFORMATION
  Report Type: Spontaneous
  Country: US (occurrence: US)
  Receive Date: 20190513
  Receipt Date: 20190619
  Transmission Date: 20190711
  Serious: Yes (Other)
  Sender: FDA-Public Use
  Company Number: US-BAYER-2019-089003

PATIENT
  Age: 73 Year
  Sex: Female

DRUGS (12)
  1. PRAVASTATIN. [Concomitant]
     Active Substance: PRAVASTATIN
     Dosage: 20 MG
  2. ASCORBIC ACID. [Concomitant]
     Active Substance: ASCORBIC ACID
  3. MULTIVITAMIN [VITAMINS NOS] [Concomitant]
  4. BAYER LOW DOSE [Suspect]
     Active Substance: ASPIRIN
     Indication: BLOOD DISORDER
     Dosage: 1 DF, QD
     Route: 048
  5. RAMIPRIL. [Concomitant]
     Active Substance: RAMIPRIL
     Dosage: 5 MG, QD
  6. AMLODIPINE [Concomitant]
     Active Substance: AMLODIPINE BESYLATE
     Dosage: 5 MG, BID
  7. JANUVIA [Concomitant]
     Active Substance: SITAGLIPTIN PHOSPHATE
     Dosage: 100 MG
  8. GABAPENTIN. [Concomitant]
     Active Substance: GABAPENTIN
     Dosage: 100 MG, BID
  9. GLIPIZIDE. [Concomitant]
     Active Substance: GLIPIZIDE
     Dosage: 10 MG
  10. BAYER LOW DOSE [Suspect]
     Active Substance: ASPIRIN
     Indication: BLOOD DISORDER
     Dosage: 1 DF, QD
     Route: 048
     Dates: start: 2012
  11. DICLOFENAC [Concomitant]
     Active Substance: DICLOFENAC
     Dosage: 75 MG, BID
  12. CALCIUM [Concomitant]
     Active Substance: CALCIUM

REACTIONS (14)
  - Diabetic neuropathy [Unknown]
  - Vision blurred [None]
  - Headache [None]
  - Pain [Recovered/Resolved]
  - Sinusitis [None]
  - Eye haemorrhage [Recovered/Resolved]
  - Contusion [Unknown]
  - Corneal abrasion [Recovered/Resolved]
  - Visual acuity reduced [Recovering/Resolving]
  - Diabetes mellitus [Unknown]
  - Eye pain [None]
  - Blindness transient [Unknown]
  - Haemorrhage [Unknown]
  - Visual impairment [Not Recovered/Not Resolved]

NARRATIVE: CASE EVENT DATE: 20160727
